FAERS Safety Report 13758950 (Version 2)
Quarter: 2017Q4

REPORT INFORMATION
  Report Type: Spontaneous
  Country: IN (occurrence: IN)
  Receive Date: 20170717
  Receipt Date: 20171103
  Transmission Date: 20180320
  Serious: Yes (Other)
  Sender: FDA-Public Use
  Company Number: IN-LUPIN PHARMACEUTICALS INC.-2017-03708

PATIENT
  Age: 28 Year
  Sex: Female

DRUGS (1)
  1. LEVONORGESTREL. [Suspect]
     Active Substance: LEVONORGESTREL
     Indication: POST COITAL CONTRACEPTION
     Dosage: 1.5 MG, UNK
     Route: 065

REACTIONS (3)
  - Ectopic pregnancy under hormonal contraception [Unknown]
  - Peritoneal haemorrhage [Unknown]
  - Ruptured ectopic pregnancy [Unknown]
